FAERS Safety Report 11225645 (Version 1)
Quarter: 2015Q2

REPORT INFORMATION
  Report Type: Spontaneous
  Country: US (occurrence: None)
  Receive Date: 20150626
  Receipt Date: 20150626
  Transmission Date: 20150821
  Serious: Yes (Hospitalization)
  Sender: FDA-Public Use
  Company Number: None

PATIENT
  Age: 38 Year
  Sex: Female
  Weight: 108.86 kg

DRUGS (4)
  1. LOSARTAN [Concomitant]
     Active Substance: LOSARTAN
  2. SINGULAIR [Suspect]
     Active Substance: MONTELUKAST SODIUM
     Indication: ASTHMA
     Dosage: TAKEN BY MOUTH
     Dates: start: 20150101, end: 20150609
  3. VENTOLIN (AEROSPAN STRIVERDI) [Concomitant]
  4. BENADRYL [Concomitant]
     Active Substance: DIPHENHYDRAMINE HYDROCHLORIDE

REACTIONS (11)
  - Thinking abnormal [None]
  - Anxiety [None]
  - Panic disorder [None]
  - Chest pain [None]
  - Back pain [None]
  - Insomnia [None]
  - Drug withdrawal syndrome [None]
  - Pain in jaw [None]
  - Drug effect decreased [None]
  - Mood altered [None]
  - Myocardial infarction [None]
